FAERS Safety Report 18859066 (Version 1)
Quarter: 2021Q1

REPORT INFORMATION
  Report Type: Spontaneous
  Country: US (occurrence: US)
  Receive Date: 20210207
  Receipt Date: 20210207
  Transmission Date: 20210420
  Serious: No
  Sender: FDA-Public Use
  Company Number: None

PATIENT
  Age: 15 Year
  Sex: Female
  Weight: 51.75 kg

DRUGS (1)
  1. LANSOPRAZOLE ORALLY DISINTEGRATING TABLETS [Suspect]
     Active Substance: LANSOPRAZOLE
     Indication: GASTROOESOPHAGEAL REFLUX DISEASE
     Route: 048
     Dates: start: 20210201, end: 20210207

REACTIONS (3)
  - Gastrooesophageal reflux disease [None]
  - Product substitution issue [None]
  - Middle insomnia [None]

NARRATIVE: CASE EVENT DATE: 20210207
